FAERS Safety Report 6405300-1 (Version None)
Quarter: 2009Q4

REPORT INFORMATION
  Report Type: 
  Country: None (occurrence: None)
  Receive Date: 20091014
  Receipt Date: 20090930
  Transmission Date: 20100525
  Serious: Yes (Other)
  Sender: FDA-Public Use
  Company Number: 2009AC000054

PATIENT
  Age: 54 Year
  Sex: Female

DRUGS (1)
  1. DIGOXIN [Suspect]
     Dosage: UNKNOWN; PO
     Route: 048

REACTIONS (30)
  - ADVERSE DRUG REACTION [None]
  - ANGINA PECTORIS [None]
  - ANHEDONIA [None]
  - ANXIETY [None]
  - ASTHMA [None]
  - ATRIAL FIBRILLATION [None]
  - ATRIAL FLUTTER [None]
  - BIPOLAR DISORDER [None]
  - BLOOD CHOLESTEROL INCREASED [None]
  - CARDIAC FAILURE CONGESTIVE [None]
  - CARDIOMEGALY [None]
  - CELLULITIS [None]
  - CHEST PAIN [None]
  - CHRONIC OBSTRUCTIVE PULMONARY DISEASE [None]
  - CORONARY ARTERY DISEASE [None]
  - DEEP VEIN THROMBOSIS [None]
  - DEPRESSION [None]
  - DIABETES MELLITUS [None]
  - ECONOMIC PROBLEM [None]
  - FAMILY STRESS [None]
  - GASTROINTESTINAL DISORDER [None]
  - HYPERTENSION [None]
  - MULTIPLE INJURIES [None]
  - MYOCARDIAL INFARCTION [None]
  - PAIN [None]
  - SCHIZOPHRENIA [None]
  - SOCIAL PROBLEM [None]
  - SURGERY [None]
  - UTERINE CANCER [None]
  - VENTRICULAR FIBRILLATION [None]
